FAERS Safety Report 6938535-X (Version None)
Quarter: 2010Q3

REPORT INFORMATION
  Report Type: 
  Country: None (occurrence: None)
  Receive Date: 20100824
  Receipt Date: 20100813
  Transmission Date: 20110219
  Serious: Yes (Death, Hospitalization)
  Sender: FDA-Public Use
  Company Number: AU-JNJFOC-20090708131

PATIENT
  Age: 58 Year
  Sex: Male

DRUGS (14)
  1. REMICADE [Suspect]
     Indication: ANKYLOSING SPONDYLITIS
     Route: 042
  2. REMICADE [Suspect]
     Dosage: EVERY 6-8 WEEKS
     Route: 042
  3. REMICADE [Suspect]
     Route: 042
  4. REMICADE [Suspect]
     Route: 042
  5. REMICADE [Suspect]
     Route: 042
  6. CELEBREX [Concomitant]
  7. ACETAMINOPHEN W/ CODEINE [Concomitant]
  8. LOMOTIL [Concomitant]
  9. NITROGLYCERIN [Concomitant]
  10. ISOVUE-128 [Concomitant]
  11. METOPROLOL [Concomitant]
  12. ATORVASTATIN [Concomitant]
  13. CLOPIDOGREL [Concomitant]
  14. ASPIRIN [Concomitant]

REACTIONS (2)
  - ACCIDENT [None]
  - MYOCARDIAL INFARCTION [None]
